FAERS Safety Report 25892471 (Version 1)
Quarter: 2025Q4

REPORT INFORMATION
  Report Type: Spontaneous
  Country: RU (occurrence: RU)
  Receive Date: 20251007
  Receipt Date: 20251007
  Transmission Date: 20260117
  Serious: Yes (Death, Other)
  Sender: BRISTOL-MYERS SQUIBB COMPANY
  Company Number: RU-BRISTOL-MYERS SQUIBB COMPANY-2025-136162

PATIENT
  Age: 68 Year
  Sex: Female

DRUGS (3)
  1. NIVOLUMAB [Suspect]
     Active Substance: NIVOLUMAB
     Indication: Renal cell carcinoma
     Dates: end: 202504
  2. NIVOLUMAB [Suspect]
     Active Substance: NIVOLUMAB
     Dosage: 4 CYCLES
  3. NELVUTAMIG [Suspect]
     Active Substance: NELVUTAMIG
     Indication: Renal cell carcinoma
     Dosage: 4 CYCLES

REACTIONS (2)
  - Cardiac failure [Fatal]
  - Asthenia [Unknown]

NARRATIVE: CASE EVENT DATE: 20250703
